APPROVED DRUG PRODUCT: SODIUM THIOSULFATE
Active Ingredient: SODIUM THIOSULFATE
Strength: 250MG/ML
Dosage Form/Route: INJECTABLE;INJECTION
Application: N020166 | Product #001
Applicant: UNITED STATES ARMY OFFICE SURGEON GENERAL
Approved: Feb 14, 1992 | RLD: Yes | RS: No | Type: DISCN